FAERS Safety Report 23484396 (Version 4)
Quarter: 2024Q1

REPORT INFORMATION
  Report Type: Spontaneous
  Country: GB (occurrence: GB)
  Receive Date: 20240206
  Receipt Date: 20240328
  Transmission Date: 20240410
  Serious: Yes (Other)
  Sender: FDA-Public Use
  Company Number: GB-JNJFOC-20231260065

PATIENT
  Age: 72 Year
  Sex: Male

DRUGS (4)
  1. PERINDOPRIL [Suspect]
     Active Substance: PERINDOPRIL
     Indication: Hypertension
     Dosage: 4 MILLIGRAM
     Route: 048
     Dates: start: 20231220
  2. ERLEADA [Suspect]
     Active Substance: APALUTAMIDE
     Indication: Prostate cancer
     Dosage: 120 MILLIGRAM
     Route: 048
  3. ERLEADA [Suspect]
     Active Substance: APALUTAMIDE
     Dosage: 180 MILLIGRAM
     Route: 048
  4. ERLEADA [Suspect]
     Active Substance: APALUTAMIDE
     Dosage: 240 MILLIGRAM, ONCE A DAY
     Route: 048
     Dates: start: 20231124, end: 20231220

REACTIONS (3)
  - Blood potassium increased [Recovered/Resolved]
  - Cough [Recovered/Resolved]
  - Hypertension [Recovering/Resolving]

NARRATIVE: CASE EVENT DATE: 20240108
